FAERS Safety Report 25976854 (Version 1)
Quarter: 2025Q4

REPORT INFORMATION
  Report Type: Spontaneous
  Country: US (occurrence: US)
  Receive Date: 20251029
  Receipt Date: 20251029
  Transmission Date: 20260117
  Serious: No
  Sender: ETON PHARMACEUTICALS, INC
  Company Number: US-IPSEN Group, Research and Development-2025-07630

PATIENT

DRUGS (3)
  1. INCRELEX [Suspect]
     Active Substance: MECASERMIN
     Indication: Primary insulin like growth factor-1 deficiency
     Dosage: 0.5 MILLILITER, Q12H
     Route: 058
     Dates: start: 20250310
  2. APIDRA [Concomitant]
     Active Substance: INSULIN GLULISINE
     Indication: Diabetes mellitus
  3. LETROZOLE [Concomitant]
     Active Substance: LETROZOLE

REACTIONS (2)
  - Blood glucose decreased [Unknown]
  - Product dose omission issue [Unknown]

NARRATIVE: CASE EVENT DATE: 20250101
